FAERS Safety Report 4922562-8 (Version None)
Quarter: 2006Q1

REPORT INFORMATION
  Report Type: 
  Country: None (occurrence: None)
  Receive Date: 20060224
  Receipt Date: 20060221
  Transmission Date: 20060701
  Serious: Yes (Other)
  Sender: FDA-Public Use
  Company Number: US-GLAXOSMITHKLINE-A0594634A

PATIENT
  Age: 45 Year
  Sex: Female

DRUGS (5)
  1. LAMICTAL [Suspect]
     Dosage: 50MG TWICE PER DAY
     Route: 048
     Dates: start: 20060209
  2. CYMBALTA [Concomitant]
  3. TEGRETOL [Concomitant]
  4. REMERON [Concomitant]
  5. TRAZODONE [Concomitant]

REACTIONS (4)
  - FLAT AFFECT [None]
  - HOMICIDAL IDEATION [None]
  - RASH [None]
  - SELF-INJURIOUS IDEATION [None]
